FAERS Safety Report 8059046-7 (Version None)
Quarter: 2012Q1

REPORT INFORMATION
  Report Type: 
  Country: None (occurrence: None)
  Receive Date: 20120120
  Receipt Date: 20110518
  Transmission Date: 20120608
  Serious: No
  Sender: FDA-Public Use
  Company Number: US-BAUSCH-2011BL003301

PATIENT
  Age: 62 Year
  Sex: Female

DRUGS (2)
  1. ALAWAY [Suspect]
     Indication: DRY EYE
     Route: 047
     Dates: start: 20110505, end: 20110505
  2. ALAWAY [Suspect]
     Indication: EYE PRURITUS
     Route: 047
     Dates: start: 20110505, end: 20110505

REACTIONS (4)
  - EYE SWELLING [None]
  - EYE IRRITATION [None]
  - EYELID MARGIN CRUSTING [None]
  - EYE PRURITUS [None]
